FAERS Safety Report 9837313 (Version 1)
Quarter: 2014Q1

REPORT INFORMATION
  Report Type: Spontaneous
  Country: US (occurrence: None)
  Receive Date: 20140117
  Receipt Date: 20140117
  Transmission Date: 20141002
  Serious: Yes (Disabling)
  Sender: FDA-Public Use
  Company Number: None

PATIENT
  Age: 56 Year
  Sex: Female
  Weight: 83.46 kg

DRUGS (1)
  1. ST. JOHNS WORT [Suspect]
     Indication: INSOMNIA
     Route: 048

REACTIONS (5)
  - Headache [None]
  - Insomnia [None]
  - Weight increased [None]
  - Oropharyngeal pain [None]
  - Dry mouth [None]
